FAERS Safety Report 6729146-X (Version None)
Quarter: 2010Q2

REPORT INFORMATION
  Report Type: 
  Country: None (occurrence: None)
  Receive Date: 20100517
  Receipt Date: 20100409
  Transmission Date: 20101027
  Serious: No
  Sender: FDA-Public Use
  Company Number: US-ABBOTT-10P-163-0638768-00

PATIENT
  Sex: Female
  Weight: 81.72 kg

DRUGS (12)
  1. SIMCOR [Suspect]
     Indication: BLOOD TRIGLYCERIDES INCREASED
     Dosage: 500/20MG
     Dates: start: 20100312
  2. METFORMIN HYDROCHLORIDE [Concomitant]
     Indication: DIABETES MELLITUS
  3. GLIPIZIDE [Concomitant]
     Indication: DIABETES MELLITUS
  4. JANUVIA [Concomitant]
     Indication: DIABETES MELLITUS
  5. SINGULAIR [Concomitant]
     Indication: ASTHMA
  6. SYNTHROID [Concomitant]
     Indication: HYPOTHYROIDISM
  7. RAMIPRIL [Concomitant]
     Indication: HYPERTENSION
  8. HYDROCHLOROTHIAZIDE [Concomitant]
     Indication: HYPERTENSION
  9. ADVAIR DISKUS 100/50 [Concomitant]
     Indication: ASTHMA
  10. RHINOCORT [Concomitant]
     Indication: HYPERSENSITIVITY
  11. ZYRTEC [Concomitant]
     Indication: HYPERSENSITIVITY
  12. MELOXICAM [Concomitant]
     Indication: ARTHRALGIA
     Dates: start: 20100312

REACTIONS (4)
  - ERYTHEMA [None]
  - HOT FLUSH [None]
  - PARAESTHESIA [None]
  - PRURITUS [None]
